FAERS Safety Report 10159500 (Version 1)
Quarter: 2014Q2

REPORT INFORMATION
  Report Type: Spontaneous
  Country: GB (occurrence: GB)
  Receive Date: 20140508
  Receipt Date: 20140508
  Transmission Date: 20141212
  Serious: Yes (Other)
  Sender: FDA-Public Use
  Company Number: GB-MYLANLABS-2014S1009768

PATIENT
  Sex: Female

DRUGS (2)
  1. WARFARIN [Suspect]
  2. ELIQUIS [Suspect]

REACTIONS (1)
  - Intracardiac thrombus [Unknown]
